FAERS Safety Report 21610292 (Version 1)
Quarter: 2022Q4

REPORT INFORMATION
  Report Type: Report from Study
  Country: US (occurrence: US)
  Receive Date: 20221117
  Receipt Date: 20221117
  Transmission Date: 20230112
  Serious: No
  Sender: FDA-Public Use
  Company Number: US-ABBVIE-4170381

PATIENT
  Age: 45 Year
  Sex: Female

DRUGS (5)
  1. ORIAHNN [Suspect]
     Active Substance: ELAGOLIX SODIUM\ESTRADIOL\NORETHINDRONE
     Indication: Uterine leiomyoma
     Route: 048
  2. ORIAHNN [Suspect]
     Active Substance: ELAGOLIX SODIUM\ESTRADIOL\NORETHINDRONE
     Indication: Uterine leiomyoma
     Route: 048
  3. Moderna [Concomitant]
     Indication: COVID-19 immunisation
     Dosage: 1ST DOSE
     Route: 030
     Dates: start: 202108, end: 202108
  4. Moderna [Concomitant]
     Indication: COVID-19 immunisation
     Dosage: 2ND DOSE
     Route: 030
     Dates: start: 202111, end: 202111
  5. Moderna [Concomitant]
     Indication: COVID-19 immunisation
     Dosage: 3RD DOSE
     Route: 030
     Dates: start: 2022, end: 2022

REACTIONS (2)
  - Fatigue [Not Recovered/Not Resolved]
  - Yawning [Not Recovered/Not Resolved]

NARRATIVE: CASE EVENT DATE: 20220929
